FAERS Safety Report 5850314-3 (Version None)
Quarter: 2008Q3

REPORT INFORMATION
  Report Type: 
  Country: None (occurrence: None)
  Receive Date: 20080819
  Receipt Date: 20080806
  Transmission Date: 20090109
  Serious: Yes (Other)
  Sender: FDA-Public Use
  Company Number: JP-GENENTECH-261237

PATIENT
  Sex: Female
  Weight: 64 kg

DRUGS (15)
  1. AVASTIN [Suspect]
     Indication: COLORECTAL CANCER METASTATIC
     Dosage: 5 MG/KG, Q2W
     Route: 042
     Dates: start: 20080221
  2. IRINOTECAN HCL [Concomitant]
     Indication: DRUG USE FOR UNKNOWN INDICATION
     Dates: start: 20080306, end: 20080306
  3. FLUOROURACIL [Concomitant]
     Indication: DRUG USE FOR UNKNOWN INDICATION
     Dates: start: 20070306, end: 20070307
  4. ISOVORIN [Concomitant]
     Indication: DRUG USE FOR UNKNOWN INDICATION
     Dates: start: 20080306, end: 20080306
  5. KYTRIL [Concomitant]
     Indication: DRUG USE FOR UNKNOWN INDICATION
     Dates: start: 20080306, end: 20080307
  6. FAMOTIDINE [Concomitant]
     Indication: DRUG USE FOR UNKNOWN INDICATION
     Dates: start: 20080306, end: 20080307
  7. DECADRON SRC [Concomitant]
     Indication: DRUG USE FOR UNKNOWN INDICATION
     Dates: start: 20080306, end: 20080307
  8. HANGE-SHASHIN-TO [Concomitant]
     Indication: DRUG USE FOR UNKNOWN INDICATION
  9. MEDICON [Concomitant]
     Indication: DRUG USE FOR UNKNOWN INDICATION
  10. NON-STEROIDAL ANTI-INFLAMMATORY DRUG (UNK ING [Concomitant]
     Indication: SNEEZING
  11. NON-STEROIDAL ANTI-INFLAMMATORY DRUG (UNK ING [Concomitant]
     Indication: HEADACHE
  12. LOXOPROFEN SODIUM [Concomitant]
     Indication: SNEEZING
  13. LOXOPROFEN SODIUM [Concomitant]
     Indication: HEADACHE
  14. FLURBIPROFEN AXETIL [Concomitant]
     Indication: SNEEZING
  15. FLURBIPROFEN AXETIL [Concomitant]
     Indication: HEADACHE

REACTIONS (4)
  - DELUSION [None]
  - DEPRESSION [None]
  - HEADACHE [None]
  - SNEEZING [None]
